FAERS Safety Report 12848535 (Version 1)
Quarter: 2016Q4

REPORT INFORMATION
  Report Type: Spontaneous
  Country: US (occurrence: US)
  Receive Date: 20161014
  Receipt Date: 20161014
  Transmission Date: 20170207
  Serious: No
  Sender: FDA-Public Use
  Company Number: US-JNJFOC-20160812248

PATIENT
  Age: 74 Year
  Sex: Male
  Weight: 81.65 kg

DRUGS (6)
  1. LISINOPRIL. [Concomitant]
     Active Substance: LISINOPRIL
     Indication: HYPERTENSION
     Dosage: YEARS
     Route: 065
  2. ATORVASTATIN [Concomitant]
     Active Substance: ATORVASTATIN
     Indication: BLOOD CHOLESTEROL INCREASED
     Route: 065
  3. TYLENOL REGULAR STRENGTH [Suspect]
     Active Substance: ACETAMINOPHEN
     Indication: SKIN CANCER
     Dosage: 1 TABLET PRN, NOT MORE THAN FOUR A DAY, 2ND RECENT SURGERY IN THE WEEK OF REPORTING
     Route: 048
     Dates: start: 201608, end: 20160812
  4. ALLEGRA [Concomitant]
     Active Substance: FEXOFENADINE HYDROCHLORIDE
     Indication: HYPERSENSITIVITY
     Route: 065
  5. ALLEGRA [Concomitant]
     Active Substance: FEXOFENADINE HYDROCHLORIDE
     Indication: MULTIPLE ALLERGIES
     Route: 065
  6. TYLENOL REGULAR STRENGTH [Suspect]
     Active Substance: ACETAMINOPHEN
     Indication: SKIN CANCER
     Dosage: 1 TABLET PRN, NOT MORE THAN FOUR A DAY AFTER FIRST SURGERY 2 1/2 WEEKS AGO
     Route: 048
     Dates: start: 2016, end: 2016

REACTIONS (4)
  - Rash macular [Not Recovered/Not Resolved]
  - Hypersensitivity [Not Recovered/Not Resolved]
  - Product use issue [Not Recovered/Not Resolved]
  - Off label use [Not Recovered/Not Resolved]

NARRATIVE: CASE EVENT DATE: 2016
